FAERS Safety Report 14157465 (Version 1)
Quarter: 2017Q4

REPORT INFORMATION
  Report Type: Spontaneous
  Country: US (occurrence: US)
  Receive Date: 20171103
  Receipt Date: 20171103
  Transmission Date: 20180321
  Serious: Yes (Other)
  Sender: FDA-Public Use
  Company Number: US-EMD SERONO-7180525

PATIENT
  Sex: Female

DRUGS (2)
  1. REBIF [Suspect]
     Active Substance: INTERFERON BETA-1A
     Route: 058
     Dates: start: 20170418
  2. REBIF [Suspect]
     Active Substance: INTERFERON BETA-1A
     Indication: MULTIPLE SCLEROSIS
     Route: 058
     Dates: start: 20111116

REACTIONS (10)
  - Hemiparesis [Not Recovered/Not Resolved]
  - Urinary tract infection [Unknown]
  - Arthritis [Unknown]
  - Bladder dysfunction [Not Recovered/Not Resolved]
  - Urinary straining [Unknown]
  - Multiple sclerosis relapse [Unknown]
  - Spinal column stenosis [Unknown]
  - Fatigue [Not Recovered/Not Resolved]
  - Intervertebral disc degeneration [Unknown]
  - Bronchitis [Unknown]

NARRATIVE: CASE EVENT DATE: 2012
